FAERS Safety Report 23447405 (Version 3)
Quarter: 2024Q1

REPORT INFORMATION
  Report Type: Spontaneous
  Country: US (occurrence: US)
  Receive Date: 20240126
  Receipt Date: 20240220
  Transmission Date: 20240410
  Serious: Yes (Death, Other)
  Sender: FDA-Public Use
  Company Number: US-AIMMUNE THERAPEUTICS, INC.-2024AIMT00126

PATIENT

DRUGS (8)
  1. VOWST [Suspect]
     Active Substance: DONOR HUMAN STOOL SPORES (ETHANOL TREATED)
     Indication: Clostridium difficile infection
     Dosage: 4 CAPSULES, 1X/DAY
     Route: 048
     Dates: start: 20231029, end: 20231031
  2. VOWST [Suspect]
     Active Substance: DONOR HUMAN STOOL SPORES (ETHANOL TREATED)
     Dosage: 4 CAPSULES, ONCE, LAST DOSE PRIOR EVENT
     Route: 048
     Dates: start: 20231031, end: 20231031
  3. VANCOMYCIN [Concomitant]
     Active Substance: VANCOMYCIN
     Indication: Clostridium difficile infection
     Dosage: MONOTHERAPY
  4. VANCOMYCIN [Concomitant]
     Active Substance: VANCOMYCIN
     Dosage: PLUS DIFICID
  5. VANCOMYCIN [Concomitant]
     Active Substance: VANCOMYCIN
     Dosage: PLUS DIFICID
     Dates: start: 20230927, end: 20231006
  6. DIFICID [Concomitant]
     Active Substance: FIDAXOMICIN
     Indication: Clostridium difficile infection
     Dosage: PLUS VANCOMYCIN
  7. DIFICID [Concomitant]
     Active Substance: FIDAXOMICIN
     Dosage: PLUS VANCOMYCIN
     Dates: start: 20230927, end: 20231006
  8. RIFAXIMIN [Concomitant]
     Active Substance: RIFAXIMIN
     Indication: Clostridium difficile infection
     Dosage: FOR 20 DAYS
     Dates: start: 20231007, end: 20231026

REACTIONS (5)
  - Death [Fatal]
  - Clostridium test positive [Unknown]
  - Weight decreased [Unknown]
  - Asthenia [Unknown]
  - Drug ineffective [Unknown]

NARRATIVE: CASE EVENT DATE: 20231117
